FAERS Safety Report 7353512-5 (Version None)
Quarter: 2011Q1

REPORT INFORMATION
  Report Type: 
  Country: None (occurrence: None)
  Receive Date: 20110315
  Receipt Date: 20110308
  Transmission Date: 20110831
  Serious: Yes (Other)
  Sender: FDA-Public Use
  Company Number: GB-JNJFOC-20110207896

PATIENT
  Sex: Male

DRUGS (1)
  1. NICORETTE NASAL SPRAY [Suspect]
     Indication: SMOKING CESSATION THERAPY
     Dosage: TWO PRODUCTS PER WEEK
     Route: 045

REACTIONS (2)
  - INCORRECT DRUG ADMINISTRATION DURATION [None]
  - DRUG DEPENDENCE [None]
